FAERS Safety Report 17226530 (Version 3)
Quarter: 2020Q1

REPORT INFORMATION
  Report Type: Report from Study
  Country: US (occurrence: US)
  Receive Date: 20200102
  Receipt Date: 20200330
  Transmission Date: 20200409
  Serious: Yes (Hospitalization)
  Sender: FDA-Public Use
  Company Number: US-ACTELION-A-NJ2019-197399

PATIENT
  Age: 39 Year
  Sex: Female

DRUGS (2)
  1. OPSUMIT [Suspect]
     Active Substance: MACITENTAN
     Indication: PULMONARY HYPERTENSION
     Dosage: 10 MG, QD
     Route: 048
     Dates: start: 20190221
  2. WARFARIN [Concomitant]
     Active Substance: WARFARIN
     Dosage: UNK

REACTIONS (13)
  - Condition aggravated [Recovering/Resolving]
  - Colonoscopy [Unknown]
  - Musculoskeletal pain [Unknown]
  - Blood sodium decreased [Unknown]
  - Pleural effusion [Recovering/Resolving]
  - Dyspnoea [Unknown]
  - Packed red blood cell transfusion [Unknown]
  - Aspiration pleural cavity [Unknown]
  - Hyponatraemia [Unknown]
  - Atelectasis [Unknown]
  - Dyspnoea exertional [Unknown]
  - Acute respiratory failure [Recovering/Resolving]
  - Anaemia [Unknown]

NARRATIVE: CASE EVENT DATE: 20190925
